FAERS Safety Report 8153154-8 (Version None)
Quarter: 2012Q1

REPORT INFORMATION
  Report Type: 
  Country: None (occurrence: None)
  Receive Date: 20120215
  Receipt Date: 20120131
  Transmission Date: 20120608
  Serious: Yes (Other)
  Sender: FDA-Public Use
  Company Number: 2012-052

PATIENT
  Age: 66 Year
  Sex: Male
  Weight: 76.2 kg

DRUGS (13)
  1. PRIALT [Suspect]
     Indication: LUMBAR RADICULOPATHY
     Dosage: 0.02 UG, ONCE/HOUR, INTRATHECAL
     Route: 037
     Dates: start: 20111228
  2. LIDODERM [Concomitant]
  3. NEXIUM [Concomitant]
  4. MECLIZINE [Concomitant]
  5. DEPO-TESTOSTERONE [Concomitant]
  6. AMBIEN CR [Concomitant]
  7. LIPITOR [Concomitant]
  8. AMRIX [Concomitant]
  9. CYTOMEL [Concomitant]
  10. SYNTHROID [Concomitant]
  11. HUMALOG [Concomitant]
  12. VOLTAREN [Concomitant]
  13. PREDNISONE TAB [Concomitant]

REACTIONS (3)
  - DRY EYE [None]
  - EYE IRRITATION [None]
  - EYE SWELLING [None]
